FAERS Safety Report 22209159 (Version 1)
Quarter: 2023Q2

REPORT INFORMATION
  Report Type: Report from Study
  Country: US (occurrence: US)
  Receive Date: 20230413
  Receipt Date: 20230413
  Transmission Date: 20230722
  Serious: Yes (Death)
  Sender: FDA-Public Use
  Company Number: US-BAUSCH-BL-2023-005901

PATIENT
  Age: 75 Year
  Sex: Male
  Weight: 54.480 kg

DRUGS (2)
  1. XIFAXAN [Suspect]
     Active Substance: RIFAXIMIN
     Indication: Hepatic failure
     Route: 048
     Dates: start: 20230304, end: 202303
  2. XIFAXAN [Suspect]
     Active Substance: RIFAXIMIN
     Indication: Cerebral disorder
     Route: 048
     Dates: start: 202303, end: 20230320

REACTIONS (2)
  - Death [Fatal]
  - Product use issue [Unknown]

NARRATIVE: CASE EVENT DATE: 20230301
